FAERS Safety Report 19823899 (Version 1)
Quarter: 2021Q3

REPORT INFORMATION
  Report Type: Spontaneous
  Country: IT (occurrence: IT)
  Receive Date: 20210914
  Receipt Date: 20210914
  Transmission Date: 20211014
  Serious: Yes (Life-Threatening, Hospitalization, Congenital Anomaly, Other)
  Sender: FDA-Public Use
  Company Number: IT-AUROBINDO-AUR-APL-2017-17876

PATIENT
  Age: 33 Week
  Sex: Female
  Weight: 1.97 kg

DRUGS (6)
  1. PARACETAMOL [Suspect]
     Active Substance: ACETAMINOPHEN
     Indication: PRODUCT USED FOR UNKNOWN INDICATION
     Dosage: 8?9 G, DAILY
     Route: 064
  2. NIMESULIDE [Suspect]
     Active Substance: NIMESULIDE
     Indication: PRODUCT USED FOR UNKNOWN INDICATION
     Dosage: 100 MILLIGRAM, ONCE A DAY
     Route: 064
  3. DICLOFENAC [Suspect]
     Active Substance: DICLOFENAC
     Indication: PRODUCT USED FOR UNKNOWN INDICATION
     Dosage: 75 MG, DAILY X 8 WKS
     Route: 064
  4. NIMESULIDE [Suspect]
     Active Substance: NIMESULIDE
     Dosage: 1 DOSAGE FORM, ONCE A DAY MATERNAL DOSE: 1 DF, QD (1 UG/LITRE)
     Route: 064
  5. PARACETAMOL [Suspect]
     Active Substance: ACETAMINOPHEN
     Dosage: 1 DOSAGE FORM, ONCE A DAY
     Route: 064
  6. NIMESULIDE [Suspect]
     Active Substance: NIMESULIDE
     Dosage: 200 MILLIGRAM, ONCE A DAY
     Route: 064

REACTIONS (10)
  - Renal failure neonatal [Recovered/Resolved]
  - Ductus arteriosus stenosis foetal [Recovered/Resolved]
  - Neonatal respiratory acidosis [Recovered/Resolved]
  - Foetal exposure during pregnancy [Unknown]
  - Cyanosis neonatal [Recovered/Resolved]
  - Bradycardia neonatal [Recovered/Resolved]
  - Bradycardia [Recovered/Resolved]
  - Cyanosis [Recovered/Resolved]
  - Neonatal respiratory distress syndrome [Recovered/Resolved]
  - Premature baby [Unknown]
